FAERS Safety Report 7803885-1 (Version None)
Quarter: 2011Q4

REPORT INFORMATION
  Report Type: 
  Country: None (occurrence: None)
  Receive Date: 20111010
  Receipt Date: 20111005
  Transmission Date: 20120403
  Serious: Yes (Other)
  Sender: FDA-Public Use
  Company Number: GB-PFIZER INC-2011237436

PATIENT
  Age: 38 Year
  Sex: Male

DRUGS (2)
  1. VARENICLINE TARTRATE [Suspect]
     Indication: SMOKING CESSATION THERAPY
     Dosage: UNK
     Dates: end: 20110101
  2. VARENICLINE TARTRATE [Suspect]
     Dosage: UNK
     Dates: start: 20110101, end: 20110101

REACTIONS (1)
  - EPILEPSY [None]
